FAERS Safety Report 8774628 (Version 4)
Quarter: 2012Q4

REPORT INFORMATION
  Report Type: 
  Country: FR (occurrence: FR)
  Receive Date: 20120907
  Receipt Date: 20121210
  Transmission Date: 20130627
  Serious: Yes (Hospitalization, Other)
  Sender: FDA-Public Use
  Company Number: FR-AMGEN-FRASP2012056113

PATIENT
  Age: 47 Year
  Sex: Female
  Weight: 90 kg

DRUGS (15)
  1. ENBREL [Suspect]
     Indication: RHEUMATOID ARTHRITIS
     Dosage: 50 mg, weekly
     Route: 058
     Dates: start: 2010, end: 201204
  2. ENBREL [Suspect]
     Dosage: 50 mg, weekly
     Route: 058
     Dates: start: 201207
  3. FLUOXETINE [Concomitant]
     Dosage: UNK
  4. CORTANCYL [Concomitant]
     Indication: RHEUMATOID ARTHRITIS
     Dosage: 7 mg, 1x/day
     Route: 048
     Dates: start: 1990
  5. CORTANCYL [Concomitant]
     Dosage: 10 mg, qd
  6. COAPROVEL [Concomitant]
     Indication: HYPERTENSION
     Dosage: 50 mg, 1x/day
     Route: 048
  7. COAPROVEL [Concomitant]
     Dosage: 150 mg, 1x/day
  8. AVLOCARDYL                         /00030001/ [Concomitant]
     Dosage: UNK
  9. PROZAC [Concomitant]
     Dosage: 20 mg, 1x/day
  10. TOPALGIC                           /00599202/ [Concomitant]
     Dosage: 300 mg, 1x/day
  11. ZOLPIDEM [Concomitant]
     Dosage: 10 mg, 1x/day
  12. DOLIPRANE [Concomitant]
     Dosage: 1 g, 3x/day
  13. UVEDOSE [Concomitant]
     Dosage: 1 DF, every 3 months
  14. MOPRAL [Concomitant]
     Dosage: 20 mg, 1x/day
  15. ZECLAR [Concomitant]
     Dosage: 500 mg, 2x/day

REACTIONS (12)
  - Normochromic normocytic anaemia [Unknown]
  - Agranulocytosis [Not Recovered/Not Resolved]
  - Abdominal hernia obstructive [Recovered/Resolved]
  - Rheumatoid arthritis [Recovered/Resolved]
  - Sinus tachycardia [Unknown]
  - Diabetes mellitus inadequate control [Recovered/Resolved]
  - Malaise [Recovered/Resolved]
  - Anxiety [Recovered/Resolved]
  - Thrombophlebitis superficial [Unknown]
  - Escherichia urinary tract infection [Recovered/Resolved]
  - Neutropenia [Recovered/Resolved]
  - Bronchopneumonia [Recovered/Resolved]
